FAERS Safety Report 5375705-9 (Version None)
Quarter: 2007Q2

REPORT INFORMATION
  Report Type: 
  Country: None (occurrence: None)
  Receive Date: 20070628
  Receipt Date: 20070622
  Transmission Date: 20071010
  Serious: Yes (Other)
  Sender: FDA-Public Use
  Company Number: 2007-02999

PATIENT
  Age: 58 Year
  Sex: Male

DRUGS (2)
  1. TRIAMCINOLONE ACETONIDE [Suspect]
     Indication: DIABETIC RETINOPATHY
     Dosage: OPHTHALMIC
     Route: 047
  2. TRIAMCINOLONE ACETONIDE [Suspect]
     Indication: MACULAR OEDEMA
     Dosage: OPHTHALMIC
     Route: 047

REACTIONS (1)
  - RETINAL TEAR [None]
